FAERS Safety Report 12967074 (Version 3)
Quarter: 2024Q1

REPORT INFORMATION
  Report Type: Other
  Country: GB (occurrence: None)
  Receive Date: 20161123
  Receipt Date: 20240308
  Transmission Date: 20240410
  Serious: Yes (Death, Other)
  Sender: FDA-Public Use
  Company Number: GB-ROCHE-1853162

PATIENT

DRUGS (4)
  1. RITUXIMAB [Suspect]
     Active Substance: RITUXIMAB
     Indication: Waldenstrom^s macroglobulinaemia
     Dosage: DAYS 1, 8, 1 5, 22 CYCLES 2 AND 5 ONLY
     Route: 042
  2. CYCLOPHOSPHAMIDE [Suspect]
     Active Substance: CYCLOPHOSPHAMIDE
     Indication: Waldenstrom^s macroglobulinaemia
     Dosage: DAYS 1, 8 AND 15
     Route: 048
  3. BORTEZOMIB [Suspect]
     Active Substance: BORTEZOMIB
     Indication: Waldenstrom^s macroglobulinaemia
     Dosage: DAYS 1, 8, 15
     Route: 058
  4. FLUDARABINE [Suspect]
     Active Substance: FLUDARABINE PHOSPHATE
     Indication: Waldenstrom^s macroglobulinaemia
     Dosage: DAYS 1-3
     Route: 048

REACTIONS (25)
  - Sepsis [Fatal]
  - Cytopenia [Not Recovered/Not Resolved]
  - Neutropenia [Unknown]
  - Thrombocytopenia [Unknown]
  - Infection [Unknown]
  - Anaemia [Unknown]
  - Diarrhoea [Unknown]
  - Pain [Unknown]
  - Back pain [Unknown]
  - Febrile neutropenia [Unknown]
  - Hypoacusis [Unknown]
  - Cardiac failure [Unknown]
  - Hypertension [Unknown]
  - Hypotension [Unknown]
  - Pneumonia [Unknown]
  - Benign neoplasm [Unknown]
  - Renal impairment [Unknown]
  - Infusion related reaction [Unknown]
  - Hyponatraemia [Unknown]
  - Alanine aminotransferase increased [Unknown]
  - Lymphocyte count decreased [Unknown]
  - Orchitis [Unknown]
  - Upper respiratory tract infection [Unknown]
  - Oesophageal obstruction [Unknown]
  - Neuralgia [Unknown]
